FAERS Safety Report 10014561 (Version 2)
Quarter: 2014Q1

REPORT INFORMATION
  Report Type: Spontaneous
  Country: US (occurrence: US)
  Receive Date: 20140317
  Receipt Date: 20140317
  Transmission Date: 20141002
  Serious: Yes (Other)
  Sender: FDA-Public Use
  Company Number: US-BAYER-2014-031142

PATIENT
  Age: 73 Year
  Sex: Female
  Weight: 104.31 kg

DRUGS (6)
  1. ALKA-SELTZER FRUIT CHEWS [Suspect]
     Indication: DYSPEPSIA
     Dosage: 2 DF, PRN
     Route: 048
     Dates: start: 2014
  2. ALEVE CAPLET [Suspect]
     Indication: BACK PAIN
     Dosage: 3 OR 4, DF THROUGHOUT THE DAY
     Route: 048
     Dates: start: 201402, end: 20140228
  3. MELOXICAM [Suspect]
  4. LISINOPRIL [Concomitant]
  5. ADDERALL [Concomitant]
  6. PAROXETINE [Concomitant]

REACTIONS (6)
  - Gastrointestinal haemorrhage [Not Recovered/Not Resolved]
  - Faeces discoloured [Not Recovered/Not Resolved]
  - Faeces discoloured [Recovered/Resolved]
  - Extra dose administered [None]
  - Incorrect drug administration duration [None]
  - Labelled drug-drug interaction medication error [None]
